FAERS Safety Report 9416580 (Version 1)
Quarter: 2013Q3

REPORT INFORMATION
  Report Type: Spontaneous
  Country: US (occurrence: US)
  Receive Date: 20130719
  Receipt Date: 20130719
  Transmission Date: 20140515
  Serious: Yes (Other)
  Sender: FDA-Public Use
  Company Number: 1800663

PATIENT
  Sex: Male

DRUGS (4)
  1. LIDOCAINE HCL [Suspect]
     Indication: ROTATOR CUFF SYNDROME
     Dosage: SUBACROMIAL INJECTION
     Dates: start: 20130320
  2. BUPIVACAINE HCL [Suspect]
     Indication: ROTATOR CUFF SYNDROME
     Dosage: SUBACROMIAL INJECTION
     Dates: start: 20130320
  3. DEPOMEDROL [Suspect]
     Indication: ROTATOR CUFF SYNDROME
     Dosage: SUBACROMIAL INJECTION
     Dates: start: 20130320
  4. CELESTONE SOLUSPAN [Suspect]
     Indication: ROTATOR CUFF SYNDROME
     Dosage: SUBACROMIAL INJECTION
     Dates: start: 20130320

REACTIONS (1)
  - Mycobacterium abscessus infection [None]
